FAERS Safety Report 5637696-2 (Version None)
Quarter: 2008Q1

REPORT INFORMATION
  Report Type: 
  Country: None (occurrence: None)
  Receive Date: 20080220
  Receipt Date: 20080206
  Transmission Date: 20080703
  Serious: Yes (Hospitalization, Other)
  Sender: FDA-Public Use
  Company Number: TOP-13

PATIENT
  Age: 76 Year
  Sex: Male
  Weight: 108 kg

DRUGS (18)
  1. ZINECARD [Suspect]
     Indication: EXTRAVASATION
     Dosage: 2000 MG ONCE IV
     Route: 042
     Dates: start: 20071203, end: 20071203
  2. TOTECT [Suspect]
     Indication: EXTRAVASATION
     Dosage: 2000  MG ONCE IV
     Route: 042
     Dates: start: 20071204, end: 20071204
  3. TOTECT [Suspect]
     Indication: EXTRAVASATION
     Dosage: 1000 MG ONCE IV
     Route: 042
     Dates: start: 20071205, end: 20071205
  4. ADRIAMYCIN PFS [Concomitant]
  5. HEXADROL [Concomitant]
  6. ALOXI [Concomitant]
  7. CASODEX [Concomitant]
  8. NASALIDE [Concomitant]
  9. LOPID [Concomitant]
  10. GLYBURIDE [Concomitant]
  11. HYDROCORTISONE [Concomitant]
  12. LEVOTHYROXINE SODIUM [Concomitant]
  13. LISINOPRIL [Concomitant]
  14. METOPROLOL TARTRATE [Concomitant]
  15. OXYBUTYNIN CHLORIDE [Concomitant]
  16. AVANDIA [Concomitant]
  17. COMPAZINE [Concomitant]
  18. ZOCOR [Concomitant]

REACTIONS (29)
  - ARTHRALGIA [None]
  - ASPARTATE AMINOTRANSFERASE INCREASED [None]
  - BLOOD CREATININE INCREASED [None]
  - BLOOD GLUCOSE INCREASED [None]
  - BLOOD SODIUM DECREASED [None]
  - BLOOD UREA INCREASED [None]
  - BURSITIS [None]
  - CATHETER SITE CELLULITIS [None]
  - CATHETER SITE ERYTHEMA [None]
  - CELLULITIS [None]
  - COUGH [None]
  - DEHYDRATION [None]
  - DYSPNOEA [None]
  - ERYTHEMA [None]
  - FATIGUE [None]
  - HAEMATOCRIT DECREASED [None]
  - HAEMOGLOBIN DECREASED [None]
  - HYPERGLYCAEMIA [None]
  - INDURATION [None]
  - INJECTION SITE ERYTHEMA [None]
  - INJECTION SITE EXTRAVASATION [None]
  - INJECTION SITE PAIN [None]
  - INJECTION SITE SWELLING [None]
  - MALAISE [None]
  - MUSCULOSKELETAL CHEST PAIN [None]
  - OEDEMA PERIPHERAL [None]
  - OSTEOARTHRITIS [None]
  - RED BLOOD CELL COUNT DECREASED [None]
  - WHITE BLOOD CELL COUNT DECREASED [None]
